FAERS Safety Report 4302595-5 (Version None)
Quarter: 2004Q1

REPORT INFORMATION
  Report Type: 
  Country: None (occurrence: None)
  Receive Date: 20040223
  Receipt Date: 20040223
  Transmission Date: 20041129
  Serious: No
  Sender: FDA-Public Use
  Company Number: None

PATIENT
  Age: 52 Year
  Sex: Male
  Weight: 83.9154 kg

DRUGS (1)
  1. CORDIS CYPHER DRUG-ELUTING CORONARY ARTERY STENTS [Suspect]
     Dates: start: 20040122

REACTIONS (1)
  - HYPERSENSITIVITY [None]
